FAERS Safety Report 12931510 (Version 3)
Quarter: 2018Q2

REPORT INFORMATION
  Report Type: Spontaneous
  Country: US (occurrence: US)
  Receive Date: 20161110
  Receipt Date: 20180619
  Transmission Date: 20180711
  Serious: Yes (Other)
  Sender: FDA-Public Use
  Company Number: US-ALLERGAN-1665725US

PATIENT
  Age: 53 Year
  Sex: Female

DRUGS (43)
  1. LUMIGAN [Suspect]
     Active Substance: BIMATOPROST
     Indication: INTRAOCULAR PRESSURE INCREASED
     Dosage: 2 GTT, QHS
     Route: 047
     Dates: start: 1997, end: 20170102
  2. HYDROCODONE BITARTRATE AND ACETAMINOPHEN [Concomitant]
     Active Substance: ACETAMINOPHEN\HYDROCODONE BITARTRATE
     Indication: PAIN
     Dosage: 1-2 TABLETS, Q6HR
  3. OSTEO-BI-FLEX ADV [Concomitant]
     Indication: ARTHRALGIA
     Dosage: 2 DF, QD
     Route: 065
  4. TUMS [Concomitant]
     Active Substance: CALCIUM CARBONATE
     Indication: ULCER
  5. CLOBEXPRO [Concomitant]
     Indication: DANDRUFF
  6. CETIRIZINE HCL [Concomitant]
     Active Substance: CETIRIZINE HYDROCHLORIDE
     Indication: SEASONAL ALLERGY
     Dosage: 10 MG, QD
     Route: 048
  7. TRAZODONE HYDROCHLORIDE. [Concomitant]
     Active Substance: TRAZODONE HYDROCHLORIDE
     Indication: OSTEOARTHRITIS
     Dosage: 150 MG, QHS
  8. IRON [Concomitant]
     Active Substance: IRON
     Dosage: 1325 MG, QD
     Route: 048
  9. SELENIUM SULFIDE. [Concomitant]
     Active Substance: SELENIUM SULFIDE
     Indication: ECZEMA
     Dosage: UNK
  10. LUMIGAN [Suspect]
     Active Substance: BIMATOPROST
     Dosage: 2 GTT, QHS
     Route: 047
     Dates: start: 1997, end: 20170102
  11. ROBITUSSIN DM [Concomitant]
     Active Substance: DEXTROMETHORPHAN HYDROBROMIDE\GUAIFENESIN
     Indication: ASTHMA
     Dosage: 2 TEASPOONS, Q4HR
     Route: 048
  12. ELIDEL [Concomitant]
     Active Substance: PIMECROLIMUS
     Indication: SKIN EXFOLIATION
     Dosage: 1-2 A DAY
  13. NABUMETONE. [Concomitant]
     Active Substance: NABUMETONE
     Dosage: 750 MG, BID
  14. XALATAN [Concomitant]
     Active Substance: LATANOPROST
     Dosage: UNK
     Route: 047
  15. TUMS [Concomitant]
     Active Substance: CALCIUM CARBONATE
     Indication: GASTROOESOPHAGEAL REFLUX DISEASE
     Dosage: 1-4 PILLS, PRN
     Route: 048
  16. LAC HYDRIN [Concomitant]
     Indication: DRY SKIN
     Dosage: UNK UNK, BID
     Route: 061
  17. CLOBETASOL PROPIONATE E [Concomitant]
     Indication: PRURITUS
     Dosage: 7 TIMES A WEEK
  18. NEXIUM [Concomitant]
     Active Substance: ESOMEPRAZOLE MAGNESIUM
     Indication: GASTROOESOPHAGEAL REFLUX DISEASE
     Dosage: 40 MG, QAM
     Route: 048
  19. TUMS [Concomitant]
     Active Substance: CALCIUM CARBONATE
     Indication: NUTRITIONAL SUPPLEMENTATION
  20. DERMA SMOOTH FS [Concomitant]
     Indication: DANDRUFF
  21. NEXIUM [Concomitant]
     Active Substance: ESOMEPRAZOLE MAGNESIUM
     Indication: ULCER
  22. DITROPAN [Concomitant]
     Active Substance: OXYBUTYNIN CHLORIDE
     Indication: AUTOMATIC BLADDER
     Dosage: UNK
  23. BACLOFEN. [Concomitant]
     Active Substance: BACLOFEN
     Indication: MUSCLE SPASMS
     Dosage: 1-4 PILLS, QD
  24. HYDROCORTISONE. [Concomitant]
     Active Substance: HYDROCORTISONE
     Indication: DECUBITUS ULCER
     Dosage: 1-2 TIMES QD
  25. SEREVENT DISKUS [Concomitant]
     Active Substance: SALMETEROL XINAFOATE
     Indication: ASTHMA
     Dosage: UNK UNK, BID
     Route: 055
  26. VIBEL [Concomitant]
     Indication: CEREBRAL PALSY
     Dosage: UNK
  27. ALBUTEROL SULFATE. [Concomitant]
     Active Substance: ALBUTEROL SULFATE
     Indication: ASTHMA
     Dosage: 90 ?G, PRN
     Route: 055
  28. DOXYCYCLINE HYCLATE. [Concomitant]
     Active Substance: DOXYCYCLINE HYCLATE
     Indication: DERMATITIS ATOPIC
     Dosage: 100 MG, 1-2 TIMES A DAY
  29. DOXYCYCLINE HYCLATE. [Concomitant]
     Active Substance: DOXYCYCLINE HYCLATE
     Indication: ECZEMA
  30. CHLORHEXIDINE [Concomitant]
     Active Substance: CHLORHEXIDINE
     Indication: GINGIVITIS
     Dosage: UNK
  31. CLOBEX [Concomitant]
     Active Substance: CLOBETASOL PROPIONATE
     Indication: ECZEMA
     Dosage: UNK
  32. LUMIGAN [Suspect]
     Active Substance: BIMATOPROST
     Indication: OPEN ANGLE GLAUCOMA
     Dosage: 2 GTT, QHS
     Route: 047
     Dates: start: 1997, end: 20170102
  33. VIACTIV CALCIUM PLUS VITAMIN D + K [Concomitant]
     Indication: NUTRITIONAL SUPPLEMENTATION
     Dosage: 1 DF, BID
     Route: 048
  34. CLOBEXPRO [Concomitant]
     Indication: SKIN EXFOLIATION
     Dosage: 1-2 TIMES, PER WEEK
  35. FLUOCINOLONE ACETONIDE. [Concomitant]
     Active Substance: FLUOCINOLONE ACETONIDE
     Indication: RASH
     Dosage: 1-2 TIMES A DAY
  36. SINGULAIR [Concomitant]
     Active Substance: MONTELUKAST SODIUM
     Indication: ASTHMA
     Dosage: 10 MG, QHS
  37. PATANOL [Concomitant]
     Active Substance: OLOPATADINE HYDROCHLORIDE
     Indication: EYE ALLERGY
     Dosage: 1-2 DROPS, 1-4 TIMES A DAY
     Route: 047
  38. ZOMETA [Concomitant]
     Active Substance: ZOLEDRONIC ACID
     Indication: OSTEOPOROSIS
     Dosage: UNK
  39. VIBEL [Concomitant]
     Indication: OSTEOARTHRITIS
  40. ALBUTEROL. [Concomitant]
     Active Substance: ALBUTEROL
     Indication: ASTHMA
     Dosage: 2 DF, BID
     Route: 055
  41. FLAXSEED [Concomitant]
     Active Substance: FLAX SEED
     Indication: BLOOD CHOLESTEROL
     Dosage: 2 DF, QD
     Route: 065
  42. DERMA SMOOTH FS [Concomitant]
     Indication: SKIN EXFOLIATION
     Dosage: 1-2 TIMES A WEEK
     Route: 061
  43. PULMICORD [Concomitant]
     Indication: ASTHMA
     Dosage: UNK, BID
     Route: 055

REACTIONS (1)
  - Breast cancer [Recovered/Resolved]
